FAERS Safety Report 10408368 (Version 3)
Quarter: 2014Q4

REPORT INFORMATION
  Report Type: Spontaneous
  Country: US (occurrence: US)
  Receive Date: 20140826
  Receipt Date: 20141218
  Transmission Date: 20150528
  Serious: No
  Sender: FDA-Public Use
  Company Number: US-AMGEN-USASP2014063233

PATIENT
  Age: 77 Year
  Sex: Female

DRUGS (1)
  1. ENBREL [Suspect]
     Active Substance: ETANERCEPT
     Indication: RHEUMATOID ARTHRITIS
     Dosage: 50 MG, QWK
     Route: 065
     Dates: start: 20140712

REACTIONS (7)
  - Rash [Unknown]
  - Myalgia [Not Recovered/Not Resolved]
  - Injection site warmth [Not Recovered/Not Resolved]
  - Back disorder [Not Recovered/Not Resolved]
  - Injection site erythema [Not Recovered/Not Resolved]
  - Pain [Not Recovered/Not Resolved]
  - Skin mass [Not Recovered/Not Resolved]

NARRATIVE: CASE EVENT DATE: 2014
